FAERS Safety Report 5744238-X (Version None)
Quarter: 2008Q2

REPORT INFORMATION
  Report Type: 
  Country: None (occurrence: None)
  Receive Date: 20080520
  Receipt Date: 20080509
  Transmission Date: 20081010
  Serious: Yes (Death)
  Sender: FDA-Public Use
  Company Number: IT-AVENTIS-200812205EU

PATIENT
  Age: 79 Year
  Sex: Female

DRUGS (4)
  1. CLEXANE [Suspect]
     Route: 058
     Dates: start: 20080416, end: 20080508
  2. HALCION [Concomitant]
     Route: 048
  3. AXAGON                             /01479301/ [Concomitant]
     Route: 048
  4. ENAPREN [Concomitant]

REACTIONS (3)
  - ACUTE MYOCARDIAL INFARCTION [None]
  - DRUG INEFFECTIVE [None]
  - PULMONARY EMBOLISM [None]
